FAERS Safety Report 4861316-8 (Version None)
Quarter: 2005Q4

REPORT INFORMATION
  Report Type: 
  Country: None (occurrence: None)
  Receive Date: 20051216
  Receipt Date: 20051203
  Transmission Date: 20060501
  Serious: Yes (Hospitalization, Other)
  Sender: FDA-Public Use
  Company Number: 2005164757

PATIENT
  Sex: Male
  Weight: 79.8331 kg

DRUGS (12)
  1. VIAGRA [Suspect]
     Indication: ERECTILE DYSFUNCTION
     Dosage: 50 MG (50 MG,AS NECESSARY), ORAL
     Route: 048
  2. IBUPROFEN [Suspect]
     Indication: GINGIVAL INFECTION
     Dosage: UNKNOWN, ORAL
     Route: 048
     Dates: start: 20050101
  3. GLUCOPHAGE [Concomitant]
  4. ASPIRIN [Concomitant]
  5. ZOCOR [Concomitant]
  6. PLAVIX [Concomitant]
  7. METOPROLOL SUCCINATE [Concomitant]
  8. ASACOL [Concomitant]
  9. TOPROL-XL [Concomitant]
  10. ALTACE [Concomitant]
  11. PROSCAR [Concomitant]
  12. PROTONIX [Concomitant]

REACTIONS (9)
  - ARTERIAL OCCLUSIVE DISEASE [None]
  - BENIGN PROSTATIC HYPERPLASIA [None]
  - CONSTIPATION [None]
  - DRUG INEFFECTIVE [None]
  - GINGIVAL INFECTION [None]
  - MEDICAL DEVICE COMPLICATION [None]
  - NEOPLASM PROSTATE [None]
  - PROSTATIC PAIN [None]
  - STRESS [None]
